FAERS Safety Report 4352472-9 (Version None)
Quarter: 2004Q2

REPORT INFORMATION
  Report Type: 
  Country: None (occurrence: None)
  Receive Date: 20040409
  Receipt Date: 20040209
  Transmission Date: 20050107
  Serious: No
  Sender: FDA-Public Use
  Company Number: PHEH2004US01677

PATIENT
  Age: 78 Year
  Sex: Female

DRUGS (2)
  1. ELIDEL [Suspect]
     Indication: ECZEMA
     Dosage: TOPICAL
     Route: 061
     Dates: start: 20040101, end: 20040207
  2. ATIVAN [Concomitant]

REACTIONS (4)
  - APPLICATION SITE WARMTH [None]
  - BLISTER [None]
  - GROIN PAIN [None]
  - LYMPHADENOPATHY [None]
